FAERS Safety Report 16567884 (Version 1)
Quarter: 2019Q3

REPORT INFORMATION
  Report Type: Spontaneous
  Country: US (occurrence: US)
  Receive Date: 20190712
  Receipt Date: 20190712
  Transmission Date: 20191004
  Serious: Yes (Other)
  Sender: FDA-Public Use
  Company Number: US-NOVOPROD-672332

PATIENT
  Age: 65 Year
  Sex: Female

DRUGS (2)
  1. NOVOLOG [Suspect]
     Active Substance: INSULIN ASPART
     Indication: PRODUCT USED FOR UNKNOWN INDICATION
     Route: 058
  2. XULTOPHY 100/3.6 [Suspect]
     Active Substance: INSULIN DEGLUDEC\LIRAGLUTIDE
     Indication: PRODUCT USED FOR UNKNOWN INDICATION
     Dosage: 15 IU, BID (IN THE MORNING AND AT NIGHT)
     Route: 058

REACTIONS (8)
  - Dysphagia [Unknown]
  - Abdominal pain upper [Unknown]
  - Dysphonia [Unknown]
  - Gait inability [Unknown]
  - Blood glucose increased [Unknown]
  - Dyspnoea [Unknown]
  - Constipation [Unknown]
  - Glycosylated haemoglobin increased [Not Recovered/Not Resolved]
